FAERS Safety Report 24108063 (Version 1)
Quarter: 2024Q3

REPORT INFORMATION
  Report Type: Report from Study
  Country: CO (occurrence: None)
  Receive Date: 20240718
  Receipt Date: 20240718
  Transmission Date: 20241016
  Serious: Yes (Hospitalization, Other)
  Sender: ASTRAZENECA
  Company Number: 2020SE76250

PATIENT
  Age: 3820 Week
  Sex: Female

DRUGS (1)
  1. BRILINTA [Suspect]
     Active Substance: TICAGRELOR
     Indication: Acute coronary syndrome
     Route: 048
     Dates: start: 20191126

REACTIONS (2)
  - Cholelithiasis [Recovering/Resolving]
  - Suspected COVID-19 [Recovering/Resolving]

NARRATIVE: CASE EVENT DATE: 20200519
